FAERS Safety Report 6669367-8 (Version None)
Quarter: 2010Q2

REPORT INFORMATION
  Report Type: 
  Country: None (occurrence: None)
  Receive Date: 20100406
  Receipt Date: 20100330
  Transmission Date: 20101027
  Serious: Yes (Hospitalization)
  Sender: FDA-Public Use
  Company Number: A0852677A

PATIENT
  Age: 63 Year
  Sex: Male

DRUGS (14)
  1. AVANDIA [Suspect]
     Dosage: 4MG TWICE PER DAY
     Route: 048
     Dates: start: 20070101, end: 20090927
  2. JANUVIA [Concomitant]
  3. GLYBURIDE [Concomitant]
  4. ALLEGRA [Concomitant]
  5. AVODART [Concomitant]
  6. ALDACTONE [Concomitant]
  7. LOVAZA [Concomitant]
  8. IMDUR [Concomitant]
  9. ALTACE [Concomitant]
  10. LIPITOR [Concomitant]
  11. POTASSIUM [Concomitant]
  12. COREG [Concomitant]
  13. ASPIRIN [Concomitant]
  14. LASIX [Concomitant]

REACTIONS (17)
  - BRAIN NATRIURETIC PEPTIDE INCREASED [None]
  - CARDIAC FAILURE CONGESTIVE [None]
  - CATHETERISATION CARDIAC [None]
  - CENTRAL NERVOUS SYSTEM LESION [None]
  - CEREBROVASCULAR ACCIDENT [None]
  - CHEST PAIN [None]
  - CORONARY ARTERY OCCLUSION [None]
  - DELIRIUM [None]
  - DYSPNOEA [None]
  - EJECTION FRACTION DECREASED [None]
  - FATIGUE [None]
  - ILL-DEFINED DISORDER [None]
  - LUNG DISORDER [None]
  - MEMORY IMPAIRMENT [None]
  - MENTAL STATUS CHANGES [None]
  - OEDEMA [None]
  - PALLOR [None]
